FAERS Safety Report 8883174 (Version 2)
Quarter: 2012Q4

REPORT INFORMATION
  Report Type: Report from Study
  Country: JP (occurrence: JP)
  Receive Date: 20121102
  Receipt Date: 20121219
  Transmission Date: 20130627
  Serious: Yes (Other)
  Sender: FDA-Public Use
  Company Number: JP-ROCHE-1150654

PATIENT
  Age: 77 Year
  Sex: Male

DRUGS (17)
  1. RANIBIZUMAB [Suspect]
     Indication: AGE-RELATED MACULAR DEGENERATION
     Route: 050
     Dates: start: 20090901
  2. RANIBIZUMAB [Suspect]
     Route: 050
     Dates: start: 20090929
  3. RANIBIZUMAB [Suspect]
     Route: 050
     Dates: start: 20091029
  4. RANIBIZUMAB [Suspect]
     Route: 050
     Dates: start: 20091217
  5. RANIBIZUMAB [Suspect]
     Route: 050
     Dates: start: 20100121
  6. RANIBIZUMAB [Suspect]
     Route: 050
     Dates: start: 20100218
  7. RANIBIZUMAB [Suspect]
     Route: 050
     Dates: start: 20100325
  8. RANIBIZUMAB [Suspect]
     Route: 050
     Dates: start: 20100913
  9. RANIBIZUMAB [Suspect]
     Route: 050
     Dates: start: 20110310
  10. RANIBIZUMAB [Suspect]
     Route: 050
     Dates: start: 20110918
  11. VISUDYNE [Concomitant]
     Route: 065
     Dates: start: 200801
  12. VISUDYNE [Concomitant]
     Route: 065
     Dates: start: 20100914
  13. CRAVIT [Concomitant]
     Route: 065
     Dates: start: 200909
  14. CRAVIT [Concomitant]
     Route: 065
     Dates: start: 201109
  15. ANCARON [Concomitant]
     Route: 065
  16. BLOPRESS [Concomitant]
     Route: 065
  17. WARFARIN POTASSIUM [Concomitant]
     Indication: ARRHYTHMIA
     Route: 065
     Dates: start: 20110422

REACTIONS (4)
  - Macular oedema [Unknown]
  - Retinal haemorrhage [Unknown]
  - Vitreous haemorrhage [Unknown]
  - Retinal vein occlusion [Recovered/Resolved with Sequelae]
